FAERS Safety Report 12119769 (Version 1)
Quarter: 2016Q1

REPORT INFORMATION
  Report Type: Spontaneous
  Country: GB (occurrence: GB)
  Receive Date: 20160226
  Receipt Date: 20160226
  Transmission Date: 20160526
  Serious: Yes (Hospitalization)
  Sender: FDA-Public Use
  Company Number: GB-TEVA-636437ACC

PATIENT
  Age: 60 Year
  Sex: Male
  Weight: 75.6 kg

DRUGS (6)
  1. 5-FLUOROURACIL [Suspect]
     Active Substance: FLUOROURACIL
     Indication: HYPOPHARYNGEAL CANCER RECURRENT
     Route: 042
  2. CISPLATIN. [Suspect]
     Active Substance: CISPLATIN
     Indication: HYPOPHARYNGEAL CANCER RECURRENT
     Route: 042
     Dates: start: 20151216, end: 20151220
  3. ORAMORPH [Concomitant]
     Active Substance: MORPHINE SULFATE
     Route: 048
  4. FENTANYL. [Concomitant]
     Active Substance: FENTANYL
     Route: 061
  5. GABAPENTIN. [Concomitant]
     Active Substance: GABAPENTIN
     Route: 048
  6. FLUCLOXACILLIN [Concomitant]
     Active Substance: FLUCLOXACILLIN
     Route: 048

REACTIONS (3)
  - Nausea [Unknown]
  - Dehydration [Unknown]
  - Mucosal inflammation [Unknown]

NARRATIVE: CASE EVENT DATE: 20151218
